FAERS Safety Report 5329780-8 (Version None)
Quarter: 2007Q2

REPORT INFORMATION
  Report Type: 
  Country: None (occurrence: None)
  Receive Date: 20070521
  Receipt Date: 20070507
  Transmission Date: 20071010
  Serious: Yes (Death, Other)
  Sender: FDA-Public Use
  Company Number: US-ELI_LILLY_AND_COMPANY-USA0508106878

PATIENT
  Age: 37 Year
  Sex: Male
  Weight: 99.773 kg

DRUGS (2)
  1. ZYPREXA [Suspect]
     Indication: SCHIZOAFFECTIVE DISORDER
     Route: 048
     Dates: start: 20030317, end: 20030801
  2. ZYPREXA [Suspect]
     Dosage: 20 MG, UNKNOWN
     Dates: start: 20050210

REACTIONS (9)
  - BLOOD GLUCOSE INCREASED [None]
  - CHOLELITHIASIS [None]
  - HEPATIC STEATOSIS [None]
  - METABOLIC DISORDER [None]
  - NEUROLEPTIC MALIGNANT SYNDROME [None]
  - OBESITY [None]
  - ORGAN FAILURE [None]
  - VOMITING [None]
  - WEIGHT INCREASED [None]
